FAERS Safety Report 23513952 (Version 1)
Quarter: 2024Q1

REPORT INFORMATION
  Report Type: Report from Study
  Country: TW (occurrence: None)
  Receive Date: 20240212
  Receipt Date: 20240212
  Transmission Date: 20240410
  Serious: Yes (Death, Other)
  Sender: FDA-Public Use
  Company Number: 2024A015561

PATIENT
  Age: 21994 Day
  Sex: Male

DRUGS (2)
  1. IMFINZI [Suspect]
     Active Substance: DURVALUMAB
     Indication: Lung neoplasm malignant
     Route: 041
     Dates: start: 20230214, end: 20230628
  2. IMFINZI [Suspect]
     Active Substance: DURVALUMAB
     Indication: Lung neoplasm malignant
     Route: 041
     Dates: start: 20230726

REACTIONS (8)
  - Hepatic failure [Fatal]
  - Sepsis [Fatal]
  - Discomfort [Unknown]
  - Feeding disorder [Unknown]
  - Constipation [Unknown]
  - Urinary retention [Unknown]
  - Red blood cell count decreased [Unknown]
  - Metastasis [Unknown]

NARRATIVE: CASE EVENT DATE: 20231117
